FAERS Safety Report 8980469 (Version 2)
Quarter: 2015Q1

REPORT INFORMATION
  Report Type: Spontaneous
  Country: CN (occurrence: CN)
  Receive Date: 20121221
  Receipt Date: 20150127
  Transmission Date: 20150721
  Serious: Yes (Other)
  Sender: FDA-Public Use
  Company Number: CN-PFIZER INC-2012317575

PATIENT
  Age: 60 Year
  Sex: Male

DRUGS (1)
  1. CEFOPERAZONE SODIUM [Suspect]
     Active Substance: CEFOPERAZONE SODIUM
     Indication: URINARY TRACT INFECTION
     Dosage: 3 G, 2X/DAY
     Route: 041

REACTIONS (1)
  - Platelet count decreased [Recovered/Resolved]
